FAERS Safety Report 10005282 (Version 2)
Quarter: 2014Q1

REPORT INFORMATION
  Report Type: Report from Study
  Country: DE (occurrence: DE)
  Receive Date: 20140312
  Receipt Date: 20140312
  Transmission Date: 20141002
  Serious: Yes (Hospitalization)
  Sender: FDA-Public Use
  Company Number: DE-TEVA-464378USA

PATIENT
  Age: 85 Year
  Sex: Female

DRUGS (4)
  1. BENDAMUSTINE [Suspect]
     Indication: B-CELL LYMPHOMA
     Route: 065
     Dates: start: 20130708
  2. RITUXIMAB [Suspect]
     Indication: B-CELL LYMPHOMA
     Dosage: 32.8571 MILLIGRAM DAILY; 375 MG/ML
     Route: 042
     Dates: start: 20130705
  3. ACE INHIBITORS [Concomitant]
     Route: 065
  4. L-THYROXINE                        /00068001/ [Concomitant]
     Route: 065

REACTIONS (1)
  - Circulatory collapse [Not Recovered/Not Resolved]
